FAERS Safety Report 7310088-6 (Version None)
Quarter: 2011Q1

REPORT INFORMATION
  Report Type: 
  Country: None (occurrence: None)
  Receive Date: 20110224
  Receipt Date: 20110118
  Transmission Date: 20110831
  Serious: No
  Sender: FDA-Public Use
  Company Number: US-BAYER-2011-007160

PATIENT
  Sex: Female

DRUGS (2)
  1. DEPO-PROVERA [Concomitant]
     Dosage: UNK
     Dates: start: 20101228
  2. MIRENA [Suspect]
     Dosage: 20 MCG/24HR, CONT
     Route: 015
     Dates: start: 20101231

REACTIONS (1)
  - MENORRHAGIA [None]
